FAERS Safety Report 14597087 (Version 1)
Quarter: 2018Q1

REPORT INFORMATION
  Report Type: Spontaneous
  Country: US (occurrence: US)
  Receive Date: 20180305
  Receipt Date: 20180305
  Transmission Date: 20180509
  Serious: Yes (Other)
  Sender: FDA-Public Use
  Company Number: US-AMGEN-USASP2018028972

PATIENT
  Age: 71 Year
  Sex: Male

DRUGS (1)
  1. CORLANOR [Suspect]
     Active Substance: IVABRADINE HYDROCHLORIDE
     Indication: CHEST PAIN
     Dosage: 1 DF, QD
     Route: 065

REACTIONS (2)
  - Off label use [Unknown]
  - Coronary artery occlusion [Unknown]
